FAERS Safety Report 6619725-2 (Version None)
Quarter: 2010Q1

REPORT INFORMATION
  Report Type: 
  Country: None (occurrence: None)
  Receive Date: 20100309
  Receipt Date: 20100224
  Transmission Date: 20100710
  Serious: Yes (Hospitalization, Other)
  Sender: FDA-Public Use
  Company Number: PHHY2010DE00972

PATIENT
  Sex: Male
  Weight: 99 kg

DRUGS (25)
  1. ALISKIREN ALI+ [Suspect]
     Indication: HYPERTENSION
     Dosage: 300 MG, PER DAY
     Route: 048
     Dates: start: 20081001
  2. BETA BLOCKING AGENTS [Concomitant]
     Dosage: UNK
  3. CALCIUM CHANNEL BLOCKERS [Concomitant]
     Dosage: UNK
  4. DIURETICS [Concomitant]
     Dosage: UNK
  5. ANTIHYPERTENSIVES [Concomitant]
     Dosage: UNK
  6. STATINS [Concomitant]
     Dosage: UNK
  7. ANGIOTENSIN II ANTAGONISTS [Concomitant]
     Dosage: UNK
     Dates: end: 20091001
  8. ACE-HEMMER [Concomitant]
     Dosage: UNK
  9. PLATELET AGGREGATION INHIBITORS [Concomitant]
  10. NSAID'S [Concomitant]
  11. ANTICOAGULANTS [Concomitant]
  12. ACE INHIBITOR NOS [Concomitant]
     Dosage: UNK
  13. ANGIOTENSIN CONVERTING ENZYME BLOCKERS [Concomitant]
     Dosage: UNK
     Dates: start: 20091001
  14. ALLOPURINOL [Concomitant]
     Dosage: 300 MG PER DAY
     Route: 048
     Dates: start: 20070115
  15. SIMVASTATIN [Concomitant]
     Dosage: 20 MG, PER DAY
     Route: 048
     Dates: start: 20070115
  16. LASIX [Concomitant]
     Dosage: 120 MG PER DAY
     Route: 048
     Dates: start: 20070115
  17. MOXONIDINE [Concomitant]
     Dosage: 0.3 MG, PER DAY
     Route: 048
     Dates: start: 20070115
  18. AMLODIPINE [Concomitant]
     Dosage: 5 MG, PER DAY
     Route: 048
     Dates: start: 20070115
  19. TAMSULOSIN HCL [Concomitant]
     Dosage: 0.4 MG, PER DAY
     Route: 048
     Dates: start: 20081001
  20. METOPROLOL SUCCINATE [Concomitant]
     Dosage: 23 MG, PER DAY
     Route: 048
     Dates: start: 20070115
  21. DICLOFENAC [Concomitant]
     Dosage: 100 MG, UNK
     Route: 048
     Dates: start: 20070115
  22. PANTOZOL [Concomitant]
     Dosage: 20 MG, PER DAY
     Route: 048
     Dates: start: 20070115
  23. KALINOR BRAUSETABLETTEN [Concomitant]
     Dosage: 20 MG, PER DAY
     Route: 048
     Dates: start: 20070115
  24. CLEXANE [Concomitant]
     Dosage: 80 MG, PER DAY
     Route: 058
     Dates: start: 20100111, end: 20100212
  25. DISALUNIL [Concomitant]
     Dosage: 25 MG, DAY
     Route: 048
     Dates: start: 20090914

REACTIONS (5)
  - ANGIOPLASTY [None]
  - ARRHYTHMIA [None]
  - MYOCARDIAL ISCHAEMIA [None]
  - PERIPHERAL VASCULAR DISORDER [None]
  - WOUND [None]
